FAERS Safety Report 9136514 (Version 1)
Quarter: 2013Q1

REPORT INFORMATION
  Report Type: Spontaneous
  Country: US (occurrence: US)
  Receive Date: 20130219
  Receipt Date: 20130219
  Transmission Date: 20140127
  Serious: No
  Sender: FDA-Public Use
  Company Number: US-BRISTOL-MYERS SQUIBB COMPANY-16845018

PATIENT
  Age: 58 Year
  Sex: Female

DRUGS (12)
  1. ABATACEPT SUBQ INJECTION 125MG/ML [Suspect]
     Indication: RHEUMATOID ARTHRITIS
     Dosage: LAST INJ: 1AUG12. DURATION: 6-7 MONTHS
     Route: 058
  2. CELEBREX [Concomitant]
  3. CYMBALTA [Concomitant]
  4. LYRICA [Concomitant]
  5. AMLODIPINE [Concomitant]
  6. ATORVASTATIN CALCIUM [Concomitant]
  7. ZOLOFT [Concomitant]
     Indication: DEPRESSION
  8. REQUIP [Concomitant]
  9. OXYCODONE [Concomitant]
     Indication: MULTIPLE FRACTURES
  10. FLEXERIL [Concomitant]
  11. TYLENOL #3 [Concomitant]
  12. PREDNISONE [Concomitant]

REACTIONS (5)
  - Diarrhoea [Unknown]
  - Nausea [Unknown]
  - Malaise [Unknown]
  - Pain [Unknown]
  - Fatigue [Unknown]
